FAERS Safety Report 6103626-2 (Version None)
Quarter: 2009Q1

REPORT INFORMATION
  Report Type: 
  Country: None (occurrence: None)
  Receive Date: 20090305
  Receipt Date: 20090304
  Transmission Date: 20090719
  Serious: Yes (Hospitalization)
  Sender: FDA-Public Use
  Company Number: PHHO2007SE07628

PATIENT
  Sex: Male
  Weight: 85 kg

DRUGS (5)
  1. LOTREL [Suspect]
     Indication: HYPERTENSION
     Dosage: LEVEL 1
     Route: 048
     Dates: start: 20040813
  2. HYTRINEX [Concomitant]
     Indication: HYPERTENSION
  3. TROMBYL [Concomitant]
  4. SIMVASTATIN [Concomitant]
  5. ATENOLOL [Concomitant]
     Indication: HYPERTENSION

REACTIONS (2)
  - HYPOTENSION [None]
  - SYNCOPE [None]
